FAERS Safety Report 22127063 (Version 3)
Quarter: 2024Q4

REPORT INFORMATION
  Report Type: Spontaneous
  Country: US (occurrence: US)
  Receive Date: 20230322
  Receipt Date: 20241209
  Transmission Date: 20250115
  Serious: Yes (Hospitalization, Other)
  Sender: VERTEX
  Company Number: US-VERTEX PHARMACEUTICALS-2023-004038

PATIENT

DRUGS (4)
  1. TRIKAFTA [Suspect]
     Active Substance: ELEXACAFTOR\IVACAFTOR\TEZACAFTOR
     Indication: Cystic fibrosis
     Dosage: UNKNOWN FREQUENCY
     Route: 048
  2. DORNASE ALFA [Concomitant]
     Active Substance: DORNASE ALFA
  3. SODIUM CHLORIDE [Concomitant]
     Active Substance: SODIUM CHLORIDE
  4. IBUPROFEN [Concomitant]
     Active Substance: IBUPROFEN

REACTIONS (27)
  - Hospitalisation [Unknown]
  - Infective pulmonary exacerbation of cystic fibrosis [Unknown]
  - Wrist fracture [Unknown]
  - Rib fracture [Unknown]
  - Abdominal pain [Unknown]
  - Pulmonary congestion [Unknown]
  - Chest discomfort [Unknown]
  - Juvenile idiopathic arthritis [Unknown]
  - Eye infection bacterial [Unknown]
  - Immunisation reaction [Unknown]
  - Sputum increased [Unknown]
  - COVID-19 [Unknown]
  - Cough [Unknown]
  - Myalgia [Unknown]
  - Pseudomonas test positive [Unknown]
  - Staphylococcus test positive [Unknown]
  - Bacterial test positive [Unknown]
  - Staphylococcus test positive [Unknown]
  - Burkholderia test positive [Unknown]
  - Stenotrophomonas test positive [Unknown]
  - Haemophilus test positive [Unknown]
  - Atypical mycobacterium test positive [Unknown]
  - Chest pain [Unknown]
  - Nasal congestion [Unknown]
  - Upper respiratory tract infection [Unknown]
  - Diarrhoea [Unknown]
  - Headache [Unknown]
